FAERS Safety Report 10098695 (Version 2)
Quarter: 2014Q2

REPORT INFORMATION
  Report Type: Report from Study
  Country: US (occurrence: US)
  Receive Date: 20140423
  Receipt Date: 20140604
  Transmission Date: 20141212
  Serious: Yes (Other)
  Sender: FDA-Public Use
  Company Number: US-ALEXION PHARMACEUTICALS INC.-A201401336

PATIENT
  Sex: 0

DRUGS (2)
  1. SOLIRIS [Suspect]
     Indication: HAEMOLYTIC URAEMIC SYNDROME
     Dosage: 1200 MG, Q2W
     Route: 040
     Dates: start: 20140122
  2. SOLIRIS [Suspect]
     Dosage: 1200 MG, Q2W
     Route: 041
     Dates: start: 20140122

REACTIONS (2)
  - Drug administration error [Unknown]
  - No adverse event [Unknown]
